FAERS Safety Report 9320212 (Version 1)
Quarter: 2013Q2

REPORT INFORMATION
  Report Type: Spontaneous
  Country: GB (occurrence: GB)
  Receive Date: 20130530
  Receipt Date: 20130530
  Transmission Date: 20140414
  Serious: Yes (Hospitalization)
  Sender: FDA-Public Use
  Company Number: GB-GILEAD-2013-0075569

PATIENT
  Age: 62 Year
  Sex: Male

DRUGS (14)
  1. VISTIDE [Suspect]
     Route: 042
     Dates: start: 20130502
  2. AMBISOME [Concomitant]
     Route: 042
  3. NORADRENALINE                      /00127501/ [Concomitant]
  4. REMIFENTANIL [Concomitant]
  5. PROPOFOL [Concomitant]
  6. PARACETAMOL [Concomitant]
  7. PROBENECID [Concomitant]
  8. MEROPENEM [Concomitant]
     Route: 042
  9. CIPROFLOXACIN [Concomitant]
     Route: 042
  10. GENTAMICIN [Concomitant]
     Dosage: AS PER LEVELS (ON FILTER).
     Route: 042
  11. CO-TRIMOXAZOLE [Concomitant]
  12. COLISTIN [Concomitant]
  13. ACICLOVIR [Concomitant]
     Route: 042
  14. TEICOPLANIN [Concomitant]
     Route: 042

REACTIONS (4)
  - Hepatic failure [Not Recovered/Not Resolved]
  - Blood alkaline phosphatase increased [Unknown]
  - Blood bilirubin increased [Unknown]
  - Condition aggravated [Unknown]
